FAERS Safety Report 10252014 (Version 1)
Quarter: 2014Q2

REPORT INFORMATION
  Report Type: Spontaneous
  Country: GB (occurrence: GB)
  Receive Date: 20140623
  Receipt Date: 20140623
  Transmission Date: 20141212
  Serious: Yes (Other)
  Sender: FDA-Public Use
  Company Number: GB-ORION CORPORATION ORION PHARMA-ENTC2014-0220

PATIENT
  Sex: Male

DRUGS (1)
  1. STALEVO [Suspect]
     Indication: PARKINSON^S DISEASE
     Dosage: 8AM, 12PM, 4PM AND 8PM
     Route: 048

REACTIONS (7)
  - Inappropriate schedule of drug administration [Unknown]
  - Drug effect delayed [Unknown]
  - Tremor [Unknown]
  - Musculoskeletal stiffness [Unknown]
  - Fall [Unknown]
  - Loss of consciousness [Unknown]
  - Immobile [Unknown]
